FAERS Safety Report 12231549 (Version 2)
Quarter: 2016Q2

REPORT INFORMATION
  Report Type: Spontaneous
  Country: US (occurrence: US)
  Receive Date: 20160401
  Receipt Date: 20160630
  Transmission Date: 20160815
  Serious: Yes (Hospitalization, Other)
  Sender: FDA-Public Use
  Company Number: US-JNJFOC-20160319884

PATIENT
  Age: 51 Year
  Sex: Female

DRUGS (3)
  1. XARELTO [Suspect]
     Active Substance: RIVAROXABAN
     Indication: HEART RATE IRREGULAR
     Route: 048
     Dates: start: 201407
  2. XARELTO [Suspect]
     Active Substance: RIVAROXABAN
     Indication: THROMBOSIS PROPHYLAXIS
     Route: 048
     Dates: start: 201407
  3. ACETAMINOPHEN. [Concomitant]
     Active Substance: ACETAMINOPHEN
     Indication: PAIN
     Route: 065

REACTIONS (3)
  - Haemorrhage [Unknown]
  - Vaginal haemorrhage [Unknown]
  - Uterine haemorrhage [Unknown]

NARRATIVE: CASE EVENT DATE: 201407
